FAERS Safety Report 24836366 (Version 1)
Quarter: 2025Q1

REPORT INFORMATION
  Report Type: Spontaneous
  Country: IL (occurrence: IL)
  Receive Date: 20250113
  Receipt Date: 20250113
  Transmission Date: 20250408
  Serious: Yes (Hospitalization, Disabling, Other)
  Sender: BIOVITRUM
  Company Number: IL-ASTRAZENECA-202501ISR003263IL

PATIENT
  Age: 9 Month
  Sex: Male

DRUGS (1)
  1. SYNAGIS [Suspect]
     Active Substance: PALIVIZUMAB
     Indication: Respiratory syncytial virus infection
     Route: 030
     Dates: start: 20241104

REACTIONS (5)
  - Angiopathy [Unknown]
  - Limb injury [Unknown]
  - Lenticular injury [Unknown]
  - Asthenia [Unknown]
  - Depression [Unknown]
